FAERS Safety Report 18186193 (Version 2)
Quarter: 2020Q3

REPORT INFORMATION
  Report Type: Spontaneous
  Country: CA (occurrence: CA)
  Receive Date: 20200824
  Receipt Date: 20200830
  Transmission Date: 20201103
  Serious: Yes (Other)
  Sender: FDA-Public Use
  Company Number: CA-ROCHE-2651922

PATIENT
  Age: 55 Year
  Sex: Female

DRUGS (4)
  1. ACETYLSALICYLIC ACID [Concomitant]
     Active Substance: ASPIRIN
     Dosage: ONGOING
  2. PREDNISONE. [Concomitant]
     Active Substance: PREDNISONE
  3. CELLCEPT [Suspect]
     Active Substance: MYCOPHENOLATE MOFETIL\MYCOPHENOLATE MOFETIL HYDROCHLORIDE
     Indication: VASCULITIS
     Dosage: DRUG DOSE FIRST ADMINISTERED IS UNKNOWN
     Route: 065
  4. VITAMIN D [Concomitant]
     Active Substance: VITAMIN D NOS

REACTIONS (13)
  - Balance disorder [Unknown]
  - Polyarteritis nodosa [Unknown]
  - Arthritis [Unknown]
  - Scleritis [Unknown]
  - Toxicity to various agents [Unknown]
  - Hypertension [Unknown]
  - Skin ulcer [Recovered/Resolved]
  - Unevaluable event [Unknown]
  - Benign soft tissue neoplasm [Unknown]
  - Deafness neurosensory [Unknown]
  - Vasculitis [Unknown]
  - Angiomyxoma [Unknown]
  - Nerve injury [Unknown]

NARRATIVE: CASE EVENT DATE: 202006
